FAERS Safety Report 23094923 (Version 6)
Quarter: 2023Q4

REPORT INFORMATION
  Report Type: Report from Study
  Country: DK (occurrence: DK)
  Receive Date: 20231023
  Receipt Date: 20231205
  Transmission Date: 20240110
  Serious: Yes (Hospitalization)
  Sender: FDA-Public Use
  Company Number: DK-BAXTER-2023BAX032708

PATIENT
  Age: 70 Year
  Sex: Female
  Weight: 81.3 kg

DRUGS (56)
  1. EPCORITAMAB [Suspect]
     Active Substance: EPCORITAMAB
     Indication: Diffuse large B-cell lymphoma
     Dosage: PRIMING DOSE C1, D1, TOTAL
     Route: 065
     Dates: start: 20230904, end: 20230904
  2. EPCORITAMAB [Suspect]
     Active Substance: EPCORITAMAB
     Dosage: REPRIMING DOSE, TOTAL
     Route: 065
     Dates: start: 20230927, end: 20230927
  3. EPCORITAMAB [Suspect]
     Active Substance: EPCORITAMAB
     Dosage: REPRIMING DOSE, TOTAL
     Route: 065
     Dates: start: 20230918, end: 20230918
  4. CYCLOPHOSPHAMIDE [Suspect]
     Active Substance: CYCLOPHOSPHAMIDE
     Indication: Diffuse large B-cell lymphoma
     Dosage: MOST RECENT DOSE RECEIVED ON 27/SEP/2023
     Route: 065
     Dates: start: 20230904
  5. VINCRISTINE [Suspect]
     Active Substance: VINCRISTINE
     Indication: Diffuse large B-cell lymphoma
     Dosage: MOST RECENT DOSE RECEIVED ON 27/SEP/2023
     Route: 065
     Dates: start: 20230904
  6. DOXORUBICIN [Suspect]
     Active Substance: DOXORUBICIN
     Indication: Diffuse large B-cell lymphoma
     Dosage: MOST RECENT DOSE RECEIVED ON 27/SEP/2023
     Route: 065
     Dates: start: 20230904
  7. RITUXIMAB [Suspect]
     Active Substance: RITUXIMAB
     Indication: Diffuse large B-cell lymphoma
     Dosage: 44.95 MG, EVERY 3 WEEKS
     Route: 041
     Dates: start: 20230905, end: 20230905
  8. RITUXIMAB [Suspect]
     Active Substance: RITUXIMAB
     Dosage: 44.95 MG, EVERY 3 WEEKS
     Route: 041
     Dates: start: 20230927
  9. PREDNISONE [Suspect]
     Active Substance: PREDNISONE
     Indication: Diffuse large B-cell lymphoma
     Dosage: C1-6, DAY 1-5
     Route: 065
     Dates: start: 20230905
  10. PREDNISONE [Suspect]
     Active Substance: PREDNISONE
     Dosage: C1-6, DAY 1-5
     Route: 065
     Dates: start: 20230927
  11. ANAKINRA [Concomitant]
     Active Substance: ANAKINRA
     Indication: Cytokine release syndrome
     Dates: start: 20230905, end: 20230905
  12. FLUOCORTOLONE PIVALATE\LIDOCAINE HYDROCHLORIDE [Concomitant]
     Active Substance: FLUOCORTOLONE PIVALATE\LIDOCAINE HYDROCHLORIDE
     Indication: Haemorrhoids
     Dosage: 1 PLUS 40 MG, 2/DAYS
     Dates: start: 20230912
  13. UNIKALK FORTE [Concomitant]
     Indication: Mineral supplementation
     Dosage: 400 MG, EVERY 1 DAYS
     Dates: start: 20230904
  14. FUROSEMIDE [Concomitant]
     Active Substance: FUROSEMIDE
     Dosage: 40 MG, EVERY 1 DAYS
     Dates: start: 20230908, end: 20230914
  15. KENALOG [Concomitant]
     Active Substance: TRIAMCINOLONE ACETONIDE
     Indication: Candida infection
     Dates: start: 20230926
  16. PANTOPRAZOLE SODIUM [Concomitant]
     Active Substance: PANTOPRAZOLE SODIUM
     Indication: Prophylaxis
     Dosage: 40 MG, EVERY 1 DAYS
     Dates: start: 20230831
  17. PANTOPRAZOLE SODIUM [Concomitant]
     Active Substance: PANTOPRAZOLE SODIUM
     Indication: Antacid therapy
  18. FLUCONAZOLE [Concomitant]
     Active Substance: FLUCONAZOLE
     Indication: Candida infection
     Dosage: 200 MG, EVERY 1 DAYS
     Dates: start: 20230926
  19. ACETAMINOPHEN [Concomitant]
     Active Substance: ACETAMINOPHEN
     Dosage: 1000 MG, TOTAL
     Dates: start: 20230918, end: 20230918
  20. NOVORAPID [Concomitant]
     Active Substance: INSULIN ASPART
     Dosage: 0-10, 5/DAYS
     Dates: start: 20230905
  21. CETIRIZINE [Concomitant]
     Active Substance: CETIRIZINE HYDROCHLORIDE
     Dosage: 10 MG, TOTAL
     Dates: start: 20230918, end: 20230918
  22. NYSTATIN [Concomitant]
     Active Substance: NYSTATIN
     Indication: Candida infection
     Dosage: 5 ML, EVERY 8 HOURS
     Dates: start: 20230926
  23. NYSTATIN [Concomitant]
     Active Substance: NYSTATIN
     Dosage: 5 ML, EVERY 8 HOURS
     Dates: start: 20230908, end: 20230922
  24. PIPERACILLIN SODIUM\TAZOBACTAM SODIUM [Concomitant]
     Active Substance: PIPERACILLIN SODIUM\TAZOBACTAM SODIUM
     Indication: Infection prophylaxis
     Dates: start: 20230906, end: 20230909
  25. APIXABAN [Concomitant]
     Active Substance: APIXABAN
     Indication: Thrombosis prophylaxis
     Dosage: 5 MG, 2/DAYS
     Dates: start: 20160803, end: 20230915
  26. DIGOXIN [Concomitant]
     Active Substance: DIGOXIN
     Indication: Atrial fibrillation
     Dosage: 250 UG, EVERY 24 HOURS
     Dates: start: 20230917
  27. AMOXICILLIN\CLAVULANIC ACID [Concomitant]
     Active Substance: AMOXICILLIN\CLAVULANIC ACID
     Dosage: 500 PLUS 125, EVERY 8 HOURS
     Dates: start: 20230909, end: 20230914
  28. ISOTONIC GLUCOSE [Concomitant]
     Indication: Dehydration
     Dosage: 1000 ML, TOTAL
     Dates: start: 20230926, end: 20230926
  29. TEMESTA [Concomitant]
     Indication: Nausea
     Dosage: 1 MG, AS NECESSARY
     Dates: start: 20230925
  30. POLYETHYLENE GLYCOL 3350\POTASSIUM CHLORIDE\SODIUM BICARBONATE\SODIUM [Concomitant]
     Active Substance: POLYETHYLENE GLYCOL 3350\POTASSIUM CHLORIDE\SODIUM BICARBONATE\SODIUM CHLORIDE
     Indication: Constipation
     Dosage: 1 SACHET, EVERY 24 HOURS
     Dates: start: 20230913
  31. ZOPICLONE [Concomitant]
     Active Substance: ZOPICLONE
     Indication: Insomnia
     Dosage: 7.5 MG, EVERY 1 DAYS
     Dates: start: 20230906, end: 20230919
  32. BETOLVEX [Concomitant]
     Indication: Vitamin supplementation
     Dosage: 2 MG, EVERY 1 DAYS
     Dates: start: 20230904
  33. APREPITANT [Concomitant]
     Active Substance: APREPITANT
     Indication: Nausea
     Dosage: 80 MG DAY 1: 125 DAY 2 AND 3: 80, EVERY 1 DAYS
     Dates: start: 20230925, end: 20230927
  34. UNSPECIFIED INGREDIENT [Concomitant]
     Active Substance: UNSPECIFIED INGREDIENT
     Indication: Haemorrhoids
     Dosage: 1 APPLICATION, EVERY 8 HOURS
     Dates: start: 20230914
  35. MORPHINE SULFATE [Concomitant]
     Active Substance: MORPHINE SULFATE
     Indication: Lymph node pain
     Dosage: 5 MG, 2/DAYS
     Dates: start: 20230914, end: 20230917
  36. MORPHINE SULFATE [Concomitant]
     Active Substance: MORPHINE SULFATE
     Dosage: 10 MG, 2/DAYS
     Dates: start: 20230913, end: 20230914
  37. MORPHINE SULFATE [Concomitant]
     Active Substance: MORPHINE SULFATE
     Dosage: 20 MG, EVERY 12 HOURS
     Dates: start: 20230903, end: 20230913
  38. CYANOCOBALAMIN [Concomitant]
     Active Substance: CYANOCOBALAMIN
     Indication: Vitamin B12 deficiency
     Dosage: 1 MG, 2/DAYS
     Dates: start: 20220322
  39. ALLOPURINOL [Concomitant]
     Active Substance: ALLOPURINOL
     Indication: Prophylaxis
     Dosage: 300 MG, EVERY 1 DAYS
     Dates: start: 20230905
  40. ONDANSETRON [Concomitant]
     Active Substance: ONDANSETRON
     Indication: Prophylaxis of nausea and vomiting
     Dosage: 8 MG, 2/DAYS
     Dates: start: 20230919
  41. ONDANSETRON [Concomitant]
     Active Substance: ONDANSETRON
     Indication: Nausea
  42. DEXAMETHASONE [Concomitant]
     Active Substance: DEXAMETHASONE
  43. RAMIPRIL [Concomitant]
     Active Substance: RAMIPRIL
     Indication: Atrial fibrillation
     Dosage: 5 MG, 2 DAYS
     Dates: start: 20160913
  44. MAGNESIUMHYDROXIDE [Concomitant]
     Indication: Constipation prophylaxis
     Dosage: 500 MG, AS NECESSARY
     Dates: start: 20230903
  45. POLYETHYLENE GLYCOLS [Concomitant]
     Active Substance: POLYETHYLENE GLYCOLS
     Indication: Constipation
     Dosage: 1 DOSAGE FORM, EVERY 1 DAYS
     Dates: start: 20230913
  46. ZOPICLONE [Concomitant]
     Active Substance: ZOPICLONE
     Indication: Insomnia
     Dosage: 7.5 MG, EVERY 1 DAYS
     Dates: start: 20230906
  47. DOMPERIDONE [Concomitant]
     Active Substance: DOMPERIDONE
     Indication: Prophylaxis of nausea and vomiting
     Dosage: 10 MG, AS NECESSARY
     Dates: start: 20230904
  48. DOMPERIDONE [Concomitant]
     Active Substance: DOMPERIDONE
     Indication: Vomiting
  49. DOMPERIDONE [Concomitant]
     Active Substance: DOMPERIDONE
     Indication: Nausea
  50. POTASSIUM CHLORIDE [Concomitant]
     Active Substance: POTASSIUM CHLORIDE
     Dosage: 750 MG, EVERY 1 DAYS
     Dates: start: 20230908, end: 20230914
  51. ALBUTEROL SULFATE\IPRATROPIUM BROMIDE [Concomitant]
     Active Substance: ALBUTEROL SULFATE\IPRATROPIUM BROMIDE
     Dosage: UNK, EVERY 8 HOURS
     Dates: start: 20230906, end: 20230910
  52. METOPROLOL SUCCINATE [Concomitant]
     Active Substance: METOPROLOL SUCCINATE
     Indication: Atrial fibrillation
     Dosage: 25 MG, EVERY 24 HOURS
     Dates: start: 20230913
  53. FRAGMIN [Concomitant]
     Active Substance: DALTEPARIN SODIUM
     Indication: Thrombosis prophylaxis
     Dosage: 15000 IU, EVERY 1 DAYS
     Dates: start: 20230919
  54. CLEMASTINE [Concomitant]
     Active Substance: CLEMASTINE
     Dosage: 1 MG, TOTAL
     Dates: start: 20230904, end: 20230904
  55. PEGFILGRASTIM [Concomitant]
     Active Substance: PEGFILGRASTIM
     Indication: Prophylaxis
     Dates: start: 20230906, end: 20230906
  56. MORPHINE [Concomitant]
     Active Substance: MORPHINE
     Indication: Lymph node pain
     Dosage: 10 MG, AS NECESSARY
     Dates: start: 20230904

REACTIONS (1)
  - Dehydration [Not Recovered/Not Resolved]

NARRATIVE: CASE EVENT DATE: 20230925
